FAERS Safety Report 20051842 (Version 1)
Quarter: 2021Q4

REPORT INFORMATION
  Report Type: Spontaneous
  Country: PH (occurrence: PH)
  Receive Date: 20211110
  Receipt Date: 20211110
  Transmission Date: 20220303
  Serious: Yes (Other)
  Sender: FDA-Public Use
  Company Number: PH-SUN PHARMACEUTICAL INDUSTRIES LTD-2021R1-316564

PATIENT
  Age: 67 Year
  Sex: Male

DRUGS (1)
  1. DIGOXIN [Suspect]
     Active Substance: DIGOXIN
     Indication: Product used for unknown indication
     Dosage: UNK
     Route: 065

REACTIONS (6)
  - Toxicity to various agents [Unknown]
  - Cardiac failure [Unknown]
  - End stage renal disease [Unknown]
  - Diabetes mellitus [Unknown]
  - Atrial fibrillation [Unknown]
  - Hypertension [Unknown]
